FAERS Safety Report 10075484 (Version 2)
Quarter: 2014Q2

REPORT INFORMATION
  Report Type: Spontaneous
  Country: AU (occurrence: AU)
  Receive Date: 20140414
  Receipt Date: 20140502
  Transmission Date: 20141212
  Serious: Yes (Death, Other)
  Sender: FDA-Public Use
  Company Number: AU-JNJFOC-20140403986

PATIENT
  Sex: Male

DRUGS (2)
  1. DUROGESIC [Suspect]
     Indication: PAIN
     Route: 062
     Dates: start: 200811
  2. PANADEINE FORTE [Suspect]
     Indication: PAIN
     Route: 065
     Dates: start: 200811

REACTIONS (3)
  - Death [Fatal]
  - Toxicity to various agents [Fatal]
  - Hypersomnia [Unknown]
